FAERS Safety Report 5967476-X (Version None)
Quarter: 2008Q4

REPORT INFORMATION
  Report Type: 
  Country: None (occurrence: None)
  Receive Date: 20081125
  Receipt Date: 20081114
  Transmission Date: 20090506
  Serious: Yes (Other)
  Sender: FDA-Public Use
  Company Number: US-PFIZER INC-2008081979

PATIENT
  Sex: Female
  Weight: 79.8 kg

DRUGS (7)
  1. CHANTIX [Suspect]
     Indication: SMOKING CESSATION THERAPY
     Route: 048
     Dates: start: 20080926
  2. WARFARIN SODIUM [Concomitant]
  3. CITALOPRAM HYDROBROMIDE [Concomitant]
  4. SYNTHROID [Concomitant]
     Route: 048
  5. REQUIP [Concomitant]
     Route: 048
  6. TOPROL-XL [Concomitant]
     Route: 048
  7. HYDROCODONE BITARTRATE [Concomitant]
     Indication: HEADACHE
     Route: 048

REACTIONS (7)
  - FEAR [None]
  - FEELING ABNORMAL [None]
  - HEADACHE [None]
  - IRRITABILITY [None]
  - NASOPHARYNGITIS [None]
  - NERVOUSNESS [None]
  - VISUAL IMPAIRMENT [None]
